FAERS Safety Report 4831143-6 (Version None)
Quarter: 2005Q4

REPORT INFORMATION
  Report Type: 
  Country: None (occurrence: None)
  Receive Date: 20051114
  Receipt Date: 20051028
  Transmission Date: 20060501
  Serious: Yes (Other)
  Sender: FDA-Public Use
  Company Number: 2005US001554

PATIENT
  Age: 7 Year
  Sex: Male
  Weight: 36 kg

DRUGS (4)
  1. AMBISOME [Suspect]
     Indication: PYREXIA
     Dosage: 100.00 MG, UID/QD, IV DRIP
     Route: 041
     Dates: start: 20050805, end: 20050805
  2. VANCOMYCIN HCL [Concomitant]
  3. GRANOCYTE (LENOGRASTIM) [Concomitant]
  4. MERONEM (MEROPENEM) [Concomitant]

REACTIONS (8)
  - DYSPHONIA [None]
  - DYSPNOEA [None]
  - FACE OEDEMA [None]
  - LACRIMAL DISORDER [None]
  - NASAL CONGESTION [None]
  - RASH [None]
  - TACHYCARDIA [None]
  - THROAT TIGHTNESS [None]
